FAERS Safety Report 11825115 (Version 1)
Quarter: 2015Q4

REPORT INFORMATION
  Report Type: Report from Study
  Country: US (occurrence: US)
  Receive Date: 20151211
  Receipt Date: 20151211
  Transmission Date: 20160305
  Serious: No
  Sender: FDA-Public Use
  Company Number: PHEH2015US025598

PATIENT
  Sex: Female

DRUGS (3)
  1. AFINITOR [Suspect]
     Active Substance: EVEROLIMUS
     Dosage: 5 MG, UNK
     Route: 048
  2. AFINITOR [Suspect]
     Active Substance: EVEROLIMUS
     Indication: BREAST CANCER METASTATIC
     Dosage: 5 MG, UNK
     Route: 048
  3. AFINITOR [Suspect]
     Active Substance: EVEROLIMUS
     Dosage: 7.5 MG, UNK
     Route: 048

REACTIONS (8)
  - Retching [Recovering/Resolving]
  - Pain [Unknown]
  - Sleep disorder [Unknown]
  - Nausea [Unknown]
  - Vomiting [Recovering/Resolving]
  - Weight decreased [Unknown]
  - Malaise [Recovering/Resolving]
  - Feeling abnormal [Recovering/Resolving]
